FAERS Safety Report 7280001-9 (Version None)
Quarter: 2011Q1

REPORT INFORMATION
  Report Type: 
  Country: None (occurrence: None)
  Receive Date: 20110208
  Receipt Date: 20110202
  Transmission Date: 20110831
  Serious: Yes (Other)
  Sender: FDA-Public Use
  Company Number: PT-BAYER-2011-010514

PATIENT
  Sex: Female

DRUGS (4)
  1. UNCODEABLE ^UNCLASSIFIABLE^ [Concomitant]
  2. REUMOXICAN [Concomitant]
     Dosage: 10 MG, UNK
  3. MELOXICAM [Concomitant]
     Dosage: 15 MG, UNK
  4. BETAFERON [Suspect]
     Dosage: UNK
     Dates: start: 20080326

REACTIONS (6)
  - MYALGIA [None]
  - ERYTHEMA [None]
  - ABSCESS [None]
  - SKIN WARM [None]
  - ABDOMINAL MASS [None]
  - GAIT DISTURBANCE [None]
